FAERS Safety Report 15662220 (Version 1)
Quarter: 2018Q4

REPORT INFORMATION
  Report Type: Spontaneous
  Country: BR (occurrence: BR)
  Receive Date: 20181127
  Receipt Date: 20181127
  Transmission Date: 20190205
  Serious: Yes (Disabling)
  Sender: FDA-Public Use
  Company Number: BR-SAKK-2018SA321613AA

PATIENT
  Sex: Female
  Weight: 48 kg

DRUGS (3)
  1. CILOSTAZOL. [Concomitant]
     Active Substance: CILOSTAZOL
  2. INSULIN GLARGINE [Concomitant]
     Active Substance: INSULIN GLARGINE
     Indication: DIABETES MELLITUS
  3. APIDRA [Suspect]
     Active Substance: INSULIN GLULISINE
     Indication: DIABETES MELLITUS MANAGEMENT
     Dosage: UNK UNK, UNK
     Route: 058
     Dates: start: 201805

REACTIONS (3)
  - Walking disability [Unknown]
  - Bedridden [Unknown]
  - Expired product administered [Unknown]
